FAERS Safety Report 14759596 (Version 1)
Quarter: 2018Q2

REPORT INFORMATION
  Report Type: Spontaneous
  Country: FI (occurrence: FI)
  Receive Date: 20180413
  Receipt Date: 20180413
  Transmission Date: 20180711
  Serious: Yes (Death)
  Sender: FDA-Public Use
  Company Number: FI-ASTRAZENECA-2018SE46050

PATIENT
  Sex: Male

DRUGS (1)
  1. FORXIGA [Suspect]
     Active Substance: DAPAGLIFLOZIN
     Dosage: 10.0MG UNKNOWN
     Route: 048

REACTIONS (1)
  - Death [Fatal]
